FAERS Safety Report 23948112 (Version 2)
Quarter: 2024Q4

REPORT INFORMATION
  Report Type: Other
  Country: SV (occurrence: SV)
  Receive Date: 20240607
  Receipt Date: 20241028
  Transmission Date: 20250115
  Serious: Yes (Death)
  Sender: TOLMAR
  Company Number: SV-TOLMAR, INC.-24SV049511

PATIENT
  Age: 87 Year
  Sex: Male

DRUGS (2)
  1. ELIGARD [Suspect]
     Active Substance: LEUPROLIDE ACETATE
     Indication: Prostate cancer
     Dosage: 45 MILLIGRAM, Q 6 MONTH
     Route: 058
     Dates: start: 20240424
  2. ELIGARD [Suspect]
     Active Substance: LEUPROLIDE ACETATE
     Indication: Prostate cancer
     Dosage: UNK

REACTIONS (3)
  - General physical health deterioration [Fatal]
  - Fall [Unknown]
  - Head injury [Unknown]

NARRATIVE: CASE EVENT DATE: 20240516
